FAERS Safety Report 9385869 (Version 1)
Quarter: 2013Q3

REPORT INFORMATION
  Report Type: Report from Study
  Country: KR (occurrence: KR)
  Receive Date: 20130705
  Receipt Date: 20130705
  Transmission Date: 20140515
  Serious: Yes (Death, Hospitalization)
  Sender: FDA-Public Use
  Company Number: KR-009507513-1307KOR001578

PATIENT
  Age: 54 Year
  Sex: Male

DRUGS (5)
  1. TEMOZOLOMIDE [Suspect]
     Indication: GLIOBLASTOMA
     Dosage: UNK
     Route: 048
     Dates: start: 20110117
  2. BEVACIZUMAB [Suspect]
     Indication: GLIOBLASTOMA
     Dosage: UNK
     Route: 042
     Dates: start: 20110117
  3. CIMETROPIUM BROMIDE [Concomitant]
     Dosage: UNK
     Dates: start: 20110126, end: 20110317
  4. ALFUZOSIN HYDROCHLORIDE [Concomitant]
     Dosage: UNK
     Dates: start: 20110222, end: 20110225
  5. DOXYCYCLINE [Concomitant]
     Dosage: UNK
     Dates: start: 20110228, end: 20110305

REACTIONS (2)
  - Acute respiratory distress syndrome [Fatal]
  - Peripheral arterial occlusive disease [Unknown]
